FAERS Safety Report 4555711-4 (Version None)
Quarter: 2005Q1

REPORT INFORMATION
  Report Type: 
  Country: None (occurrence: None)
  Receive Date: 20050112
  Receipt Date: 20040129
  Transmission Date: 20050727
  Serious: Yes (Other)
  Sender: FDA-Public Use
  Company Number: 200412080BWH

PATIENT
  Age: 77 Year
  Sex: Male

DRUGS (3)
  1. CIPRO [Suspect]
     Indication: PROSTATITIS
     Dosage: ORAL
     Route: 048
  2. FLOMAX [Concomitant]
  3. PAXIL [Concomitant]

REACTIONS (2)
  - DIZZINESS [None]
  - SYNCOPE [None]
